FAERS Safety Report 7842084-4 (Version None)
Quarter: 2011Q4

REPORT INFORMATION
  Report Type: 
  Country: None (occurrence: None)
  Receive Date: 20111025
  Receipt Date: 20111024
  Transmission Date: 20120403
  Serious: Yes (Death)
  Sender: FDA-Public Use
  Company Number: PHHY2011NL93495

PATIENT
  Sex: Male

DRUGS (2)
  1. ZOMETA [Suspect]
     Indication: PROSTATE CANCER METASTATIC
     Dosage: 4 MG/ 5 ML
  2. ZOMETA [Suspect]
     Dosage: 4 MG/ 5 ML
     Dates: start: 20110815

REACTIONS (1)
  - DEATH [None]
